FAERS Safety Report 4370170-2 (Version None)
Quarter: 2004Q2

REPORT INFORMATION
  Report Type: 
  Country: None (occurrence: None)
  Receive Date: 20040603
  Receipt Date: 20040428
  Transmission Date: 20050107
  Serious: Yes (Other)
  Sender: FDA-Public Use
  Company Number: US-BRISTOL-MYERS SQUIBB COMPANY-12577714

PATIENT
  Age: 11 Year
  Sex: Female
  Weight: 38 kg

DRUGS (6)
  1. ABILIFY [Suspect]
     Indication: HALLUCINATION
     Route: 048
     Dates: start: 20031001
  2. ABILIFY [Suspect]
     Indication: HALLUCINATION, AUDITORY
     Route: 048
     Dates: start: 20031001
  3. ABILIFY [Suspect]
     Indication: ANXIETY
     Route: 048
     Dates: start: 20031001
  4. PAXIL [Concomitant]
  5. ZANTAC [Concomitant]
  6. ADVIL [Concomitant]

REACTIONS (2)
  - HEADACHE [None]
  - VOMITING [None]
